FAERS Safety Report 6710701-8 (Version None)
Quarter: 2010Q2

REPORT INFORMATION
  Report Type: 
  Country: None (occurrence: None)
  Receive Date: 20100504
  Receipt Date: 20100504
  Transmission Date: 20101027
  Serious: No
  Sender: FDA-Public Use
  Company Number: None

PATIENT
  Age: 6 Month
  Sex: Male
  Weight: 7.7111 kg

DRUGS (2)
  1. CHILDREN'S TYLENOL SUSPENSION [Suspect]
     Indication: NASOPHARYNGITIS
     Dates: start: 20100416, end: 20100430
  2. CHILDREN'S BENADRYL ALLERGY [Suspect]

REACTIONS (3)
  - PRODUCT QUALITY ISSUE [None]
  - RASH GENERALISED [None]
  - RASH MACULAR [None]
